FAERS Safety Report 5594779-3 (Version None)
Quarter: 2008Q1

REPORT INFORMATION
  Report Type: 
  Country: None (occurrence: None)
  Receive Date: 20080117
  Receipt Date: 20080114
  Transmission Date: 20080703
  Serious: Yes (Hospitalization)
  Sender: FDA-Public Use
  Company Number: A0703010A

PATIENT
  Age: 47 Year
  Sex: Female

DRUGS (5)
  1. LAMICTAL [Suspect]
     Indication: AFFECTIVE DISORDER
     Route: 048
     Dates: start: 20070701, end: 20080109
  2. SEROQUEL [Concomitant]
  3. KLONOPIN [Concomitant]
  4. WELLBUTRIN [Concomitant]
  5. LEXAPRO [Concomitant]

REACTIONS (3)
  - LOCAL SWELLING [None]
  - MENTAL DISORDER [None]
  - RASH PRURITIC [None]
